FAERS Safety Report 5929453-4 (Version None)
Quarter: 2008Q4

REPORT INFORMATION
  Report Type: 
  Country: None (occurrence: None)
  Receive Date: 20081024
  Receipt Date: 20081020
  Transmission Date: 20090506
  Serious: Yes (Hospitalization)
  Sender: FDA-Public Use
  Company Number: US-ELI_LILLY_AND_COMPANY-US200806003082

PATIENT
  Sex: Male
  Weight: 111.11 kg

DRUGS (15)
  1. HUMALOG [Suspect]
  2. BYETTA [Concomitant]
  3. LANTUS [Concomitant]
     Dosage: 14 U, EACH MORNING
  4. LANTUS [Concomitant]
     Dosage: 19 U, EACH EVENING
  5. COREG [Concomitant]
  6. SIMVASTATIN [Concomitant]
  7. ASPIRIN [Concomitant]
  8. TOPAMAX [Concomitant]
  9. DETROL [Concomitant]
     Dosage: 4 MG, DAILY (1/D)
     Route: 048
  10. CALCITRIOL [Concomitant]
  11. TRAMADOL HCL [Concomitant]
  12. ZYRTEC [Concomitant]
     Dosage: 10 MG, DAILY (1/D)
     Route: 048
  13. FLONASE [Concomitant]
  14. GABAPENTIN [Concomitant]
     Dosage: 300 MG, 3/D
  15. ZOCOR [Concomitant]
     Dosage: 40 MG, EACH EVENING

REACTIONS (12)
  - BACK PAIN [None]
  - DIABETIC NEUROPATHY [None]
  - DYSPNOEA EXERTIONAL [None]
  - FALL [None]
  - HAEMOGLOBIN DECREASED [None]
  - LUMBAR SPINAL STENOSIS [None]
  - MOBILITY DECREASED [None]
  - MUSCULAR WEAKNESS [None]
  - OEDEMA PERIPHERAL [None]
  - PRODUCT QUALITY ISSUE [None]
  - URINARY INCONTINENCE [None]
  - VISUAL ACUITY REDUCED [None]
